FAERS Safety Report 10610732 (Version 2)
Quarter: 2014Q4

REPORT INFORMATION
  Report Type: Spontaneous
  Country: DE (occurrence: DE)
  Receive Date: 20141126
  Receipt Date: 20141126
  Transmission Date: 20150529
  Serious: Yes (Other)
  Sender: FDA-Public Use
  Company Number: DE-GLAXOSMITHKLINE-D0056262A

PATIENT
  Sex: Female

DRUGS (7)
  1. LAMICTAL [Suspect]
     Active Substance: LAMOTRIGINE
     Indication: EPILEPSY
     Route: 048
  2. BRETARIS [Concomitant]
  3. VIANI FORTE [Concomitant]
     Active Substance: FLUTICASONE PROPIONATE\SALMETEROL XINAFOATE
  4. THEOPHYLLIN [Interacting]
     Active Substance: THEOPHYLLINE ANHYDROUS
     Route: 065
  5. SINGULAIR [Concomitant]
     Active Substance: MONTELUKAST SODIUM
  6. DECORTIN [Concomitant]
     Active Substance: PREDNISONE
  7. CORTISONE [Concomitant]
     Active Substance: CORTISONE\HYDROCORTISONE

REACTIONS (9)
  - Cough [Unknown]
  - Dyspnoea [Unknown]
  - Generalised tonic-clonic seizure [Unknown]
  - Pneumonia [Unknown]
  - Hypertension [Unknown]
  - Seizure [Unknown]
  - Performance status decreased [Unknown]
  - Asthma [Unknown]
  - Drug interaction [Unknown]

NARRATIVE: CASE EVENT DATE: 20141106
